FAERS Safety Report 14327675 (Version 2)
Quarter: 2018Q1

REPORT INFORMATION
  Report Type: Report from Study
  Country: CO (occurrence: CO)
  Receive Date: 20171227
  Receipt Date: 20180111
  Transmission Date: 20180509
  Serious: Yes (Hospitalization, Other)
  Sender: FDA-Public Use
  Company Number: CO-JNJFOC-20171230001

PATIENT
  Age: 75 Year
  Sex: Male
  Weight: 82 kg

DRUGS (2)
  1. PREDNISOLONE. [Concomitant]
     Active Substance: PREDNISOLONE
     Indication: PROSTATE CANCER
     Route: 048
     Dates: start: 20170825
  2. ZYTIGA [Suspect]
     Active Substance: ABIRATERONE ACETATE
     Indication: PROSTATE CANCER
     Route: 048
     Dates: start: 20170825

REACTIONS (5)
  - Pulmonary oedema [Recovering/Resolving]
  - Cardiac failure [Recovering/Resolving]
  - Chronic gastritis [Not Recovered/Not Resolved]
  - Hypertension [Recovering/Resolving]
  - Blood glucose increased [Recovering/Resolving]

NARRATIVE: CASE EVENT DATE: 20171203
